FAERS Safety Report 14798583 (Version 1)
Quarter: 2018Q2

REPORT INFORMATION
  Report Type: Spontaneous
  Country: US (occurrence: US)
  Receive Date: 20180415
  Receipt Date: 20180415
  Transmission Date: 20180711
  Serious: No
  Sender: FDA-Public Use
  Company Number: None

PATIENT
  Age: 55 Year
  Sex: Female

DRUGS (1)
  1. EPCLUSA [Suspect]
     Active Substance: SOFOSBUVIR\VELPATASVIR
     Indication: HEPATITIS C
     Dosage: 400/100MG 1QD ORAL
     Route: 048
     Dates: start: 20180125

REACTIONS (2)
  - Pain in extremity [None]
  - Headache [None]

NARRATIVE: CASE EVENT DATE: 20180315
